FAERS Safety Report 17726812 (Version 1)
Quarter: 2020Q2

REPORT INFORMATION
  Report Type: Spontaneous
  Country: US (occurrence: US)
  Receive Date: 20200430
  Receipt Date: 20200430
  Transmission Date: 20200714
  Serious: No
  Sender: FDA-Public Use
  Company Number: US-VISTAPHARM, INC.-VER202002-000432

PATIENT
  Sex: Female

DRUGS (2)
  1. NYSTATIN. [Suspect]
     Active Substance: NYSTATIN
     Indication: PRODUCT USED FOR UNKNOWN INDICATION
     Dosage: UNKNOWN
     Route: 048
  2. NYSTATIN. [Suspect]
     Active Substance: NYSTATIN
     Dosage: UNKNOWN
     Route: 048

REACTIONS (2)
  - Product taste abnormal [Unknown]
  - Oral discomfort [Unknown]
